FAERS Safety Report 25656519 (Version 2)
Quarter: 2025Q3

REPORT INFORMATION
  Report Type: Spontaneous
  Country: JP (occurrence: JP)
  Receive Date: 20250807
  Receipt Date: 20250829
  Transmission Date: 20251021
  Serious: Yes (Other)
  Sender: INCYTE
  Company Number: JP-002147023-NVSJ2025JP007876

PATIENT

DRUGS (2)
  1. RUXOLITINIB [Suspect]
     Active Substance: RUXOLITINIB
     Indication: Acute graft versus host disease
     Dosage: 5 MG, BID, AFTER BREAKFAST AND DINNER
  2. RUXOLITINIB [Suspect]
     Active Substance: RUXOLITINIB

REACTIONS (1)
  - Renal impairment [Recovering/Resolving]
